FAERS Safety Report 6674055-8 (Version None)
Quarter: 2010Q2

REPORT INFORMATION
  Report Type: 
  Country: None (occurrence: None)
  Receive Date: 20100409
  Receipt Date: 20100329
  Transmission Date: 20101027
  Serious: Yes (Hospitalization, Other)
  Sender: FDA-Public Use
  Company Number: GB-BRISTOL-MYERS SQUIBB COMPANY-15023724

PATIENT
  Age: 49 Year
  Sex: Female

DRUGS (5)
  1. WARFARIN SODIUM [Suspect]
     Indication: ANTICOAGULANT THERAPY
  2. ACETYLSALICYLIC ACID [Suspect]
     Indication: ANTICOAGULANT THERAPY
     Dosage: TAKEN 150MG FOR 1 WEEK THEN TAKEN 75MG
  3. CLOPIDOGREL BISULFATE [Suspect]
     Indication: ANTICOAGULANT THERAPY
  4. GLYCOPROTEIN [Suspect]
     Indication: ANTICOAGULANT THERAPY
  5. TIROFIBAN HCL [Suspect]
     Indication: ANTIPLATELET THERAPY
     Route: 041

REACTIONS (3)
  - INFUSION SITE HAEMORRHAGE [None]
  - OFF LABEL USE [None]
  - VENOUS HAEMORRHAGE [None]
